FAERS Safety Report 7546867-X (Version None)
Quarter: 2011Q2

REPORT INFORMATION
  Report Type: 
  Country: None (occurrence: None)
  Receive Date: 20110607
  Receipt Date: 20110602
  Transmission Date: 20111010
  Serious: Yes (Other)
  Sender: FDA-Public Use
  Company Number: TRP_07606_2011

PATIENT
  Sex: Female

DRUGS (2)
  1. RIBAVIRIN [Suspect]
     Indication: HEPATITIS C
     Dosage: (DF), (LOWERED DOSE)
  2. PEGINTERFERON ALFA-2A [Suspect]
     Indication: HEPATITIS C
     Dosage: (DF), (LOWERED DOSE)

REACTIONS (6)
  - BONE MARROW TOXICITY [None]
  - THERAPY CESSATION [None]
  - PSORIASIS [None]
  - GRANULOCYTOPENIA [None]
  - NO THERAPEUTIC RESPONSE [None]
  - NEUTROPENIA [None]
